FAERS Safety Report 10769020 (Version 7)
Quarter: 2018Q2

REPORT INFORMATION
  Report Type: Spontaneous
  Country: US (occurrence: US)
  Receive Date: 20150206
  Receipt Date: 20180626
  Transmission Date: 20180711
  Serious: Yes (Other)
  Sender: FDA-Public Use
  Company Number: US-JNJFOC-20150121284

PATIENT
  Age: 29 Year
  Sex: Female
  Weight: 68.04 kg

DRUGS (1)
  1. TOPAMAX [Suspect]
     Active Substance: TOPIRAMATE
     Indication: SEIZURE
     Dosage: 100 MG MORNING, 50 MG EVENING
     Route: 048

REACTIONS (14)
  - Limb operation [Unknown]
  - Confusional state [Not Recovered/Not Resolved]
  - Dandruff [Not Recovered/Not Resolved]
  - Alopecia [Not Recovered/Not Resolved]
  - Hypothyroidism [Unknown]
  - Depression [Not Recovered/Not Resolved]
  - Peripheral swelling [Unknown]
  - Nightmare [Unknown]
  - Dysgeusia [Not Recovered/Not Resolved]
  - Therapeutic response decreased [Unknown]
  - Glaucoma [Not Recovered/Not Resolved]
  - Somnolence [Not Recovered/Not Resolved]
  - Cataract [Unknown]
  - Superficial injury of eye [Unknown]

NARRATIVE: CASE EVENT DATE: 201603
